FAERS Safety Report 17672257 (Version 2)
Quarter: 2020Q2

REPORT INFORMATION
  Report Type: Spontaneous
  Country: GB (occurrence: GB)
  Receive Date: 20200415
  Receipt Date: 20200506
  Transmission Date: 20200713
  Serious: Yes (Other)
  Sender: FDA-Public Use
  Company Number: GB-MYLANLABS-2020M1035524

PATIENT
  Age: 80 Year
  Sex: Male

DRUGS (1)
  1. EFUDIX 5 % CREME [Suspect]
     Active Substance: FLUOROURACIL
     Indication: PRODUCT USED FOR UNKNOWN INDICATION
     Dosage: UNK
     Route: 065

REACTIONS (2)
  - Scrotal infection [Recovered/Resolved]
  - Product use in unapproved indication [Unknown]
